FAERS Safety Report 7937584-2 (Version None)
Quarter: 2011Q4

REPORT INFORMATION
  Report Type: 
  Country: None (occurrence: None)
  Receive Date: 20111123
  Receipt Date: 20111117
  Transmission Date: 20120403
  Serious: No
  Sender: FDA-Public Use
  Company Number: JP-B.I. PHARMACEUTICALS,INC./RIDGEFIELD-2011-BP-25365NB

PATIENT
  Sex: Female
  Weight: 47.6 kg

DRUGS (15)
  1. MOBIC [Concomitant]
     Indication: RHEUMATOID ARTHRITIS
     Route: 065
     Dates: start: 20110824
  2. ALFAROL [Concomitant]
     Indication: OSTEOPOROSIS
     Route: 065
     Dates: start: 20050901
  3. AROMASIN [Concomitant]
     Indication: BREAST CANCER
     Route: 065
     Dates: start: 20080601
  4. MEDROL [Suspect]
     Indication: RHEUMATOID ARTHRITIS
     Dosage: 4 MG
     Route: 048
  5. NORVASC [Concomitant]
     Indication: HYPERTENSION
     Route: 065
     Dates: start: 20050901
  6. MUCOSTA [Concomitant]
     Indication: GASTRITIS
     Route: 065
     Dates: start: 20050901
  7. LUVOX [Concomitant]
     Indication: DEPRESSION
     Route: 065
     Dates: start: 20050901
  8. LENDORMIN D TABLETS [Concomitant]
     Indication: INSOMNIA
     Route: 065
     Dates: start: 20050101
  9. MOHRUS TAPE [Concomitant]
     Indication: RHEUMATOID ARTHRITIS
     Route: 062
  10. LAXOBERON [Concomitant]
     Indication: CONSTIPATION
     Route: 065
     Dates: start: 20050101
  11. LANSOPRAZOLE [Concomitant]
     Indication: GASTROOESOPHAGEAL REFLUX DISEASE
     Route: 065
     Dates: start: 20050901
  12. TRAZENTA [Suspect]
     Indication: DIABETES MELLITUS
     Dosage: 5 MG
     Route: 048
     Dates: start: 20111026, end: 20111030
  13. METHYCOBAL [Concomitant]
     Indication: NEUROPATHY PERIPHERAL
     Route: 065
     Dates: start: 20050901
  14. ENSURE LIQUID [Concomitant]
     Indication: MALNUTRITION
     Route: 065
     Dates: start: 20110816
  15. ELCITONIN [Concomitant]
     Indication: OSTEOPOROSIS
     Route: 030
     Dates: start: 20110607

REACTIONS (3)
  - PRURITUS GENERALISED [None]
  - RASH [None]
  - SENSATION OF FOREIGN BODY [None]
